FAERS Safety Report 4990752-4 (Version None)
Quarter: 2006Q2

REPORT INFORMATION
  Report Type: 
  Country: None (occurrence: None)
  Receive Date: 20060427
  Receipt Date: 20060417
  Transmission Date: 20061013
  Serious: Yes (Hospitalization)
  Sender: FDA-Public Use
  Company Number: 224169

PATIENT
  Age: 66 Year
  Sex: Male
  Weight: 103.4 kg

DRUGS (18)
  1. AVASTIN [Suspect]
     Indication: NON-SMALL CELL LUNG CANCER
     Dosage: 15 MG/KG, Q3W, INTRAVENOUS
     Route: 042
  2. CARBOPLATIN [Suspect]
     Indication: NON-SMALL CELL LUNG CANCER
     Dosage: 6 AUC, Q3W, INTRAVENOUS
     Route: 042
     Dates: start: 20051215, end: 20060328
  3. PEMETREXED (PEMETREXED) [Suspect]
     Indication: NON-SMALL CELL LUNG CANCER
     Dosage: 500 MG/M2, Q3W, INTRAVENOUS
     Route: 042
     Dates: start: 20051213, end: 20060328
  4. CLARITIN [Concomitant]
  5. PREDNISONE (PREDISONE) [Concomitant]
  6. FOLIC ACID [Concomitant]
  7. DECADRON [Concomitant]
  8. TOPROL-XL [Concomitant]
  9. ZESTRIL [Concomitant]
  10. NEXIUM [Concomitant]
  11. MORPHINE SULFATE [Concomitant]
  12. PERIDEX (CHLORHEXIDINE GLUCONATE) [Concomitant]
  13. MAGIC MOUTHWASH (NYSTATIN, MAALOX, LIDOCAINE, (ALUMINUM HYDROXIDE, DIP [Concomitant]
  14. METOPROLOL TARTRATE [Concomitant]
  15. SOTALOL HYDROCHLORIDE [Concomitant]
  16. MEVACOR [Concomitant]
  17. ADVAIR DISKUS (FLUTICASONE PROPIONATE, SALMETEROL XINAFOATE) [Concomitant]
  18. IPRATROPIUM BROMIDE [Concomitant]

REACTIONS (14)
  - ANAEMIA [None]
  - BLOOD IRON INCREASED [None]
  - BLOOD LACTATE DEHYDROGENASE INCREASED [None]
  - BUNDLE BRANCH BLOCK RIGHT [None]
  - DRUG TOXICITY [None]
  - DYSPNOEA [None]
  - ELECTROCARDIOGRAM ABNORMAL [None]
  - ELECTROCARDIOGRAM QT PROLONGED [None]
  - EPISTAXIS [None]
  - FATIGUE [None]
  - NEUTROPENIA [None]
  - PANCYTOPENIA [None]
  - THROMBOCYTOPENIA [None]
  - VENTRICULAR EXTRASYSTOLES [None]
